FAERS Safety Report 12725291 (Version 1)
Quarter: 2016Q3

REPORT INFORMATION
  Report Type: Spontaneous
  Country: US (occurrence: US)
  Receive Date: 20160908
  Receipt Date: 20160908
  Transmission Date: 20161109
  Serious: Yes (Other)
  Sender: FDA-Public Use
  Company Number: US-TEVA-690343USA

PATIENT
  Age: 25 Year
  Sex: Female

DRUGS (5)
  1. COPAXONE [Suspect]
     Active Substance: GLATIRAMER ACETATE
     Indication: MULTIPLE SCLEROSIS
     Route: 058
     Dates: start: 20160515
  2. ORTHO TRI CYCLEN [Concomitant]
     Active Substance: ETHINYL ESTRADIOL\NORGESTIMATE
  3. ADDERALL XR [Concomitant]
     Active Substance: AMPHETAMINE ASPARTATE\AMPHETAMINE SULFATE\DEXTROAMPHETAMINE SACCHARATE\DEXTROAMPHETAMINE SULFATE
  4. WELLBUTRIN [Concomitant]
     Active Substance: BUPROPION HYDROCHLORIDE
  5. LAMICTAL [Concomitant]
     Active Substance: LAMOTRIGINE

REACTIONS (4)
  - Multiple sclerosis relapse [Unknown]
  - Injection site erythema [Unknown]
  - Hypoaesthesia [Unknown]
  - Fall [Unknown]

NARRATIVE: CASE EVENT DATE: 201608
